FAERS Safety Report 26132461 (Version 1)
Quarter: 2025Q4

REPORT INFORMATION
  Report Type: Spontaneous
  Country: JP (occurrence: JP)
  Receive Date: 20251208
  Receipt Date: 20251208
  Transmission Date: 20260118
  Serious: Yes (Death)
  Sender: MERCK SHARP & DOHME LLC
  Company Number: JP-009507513-2258110

PATIENT
  Age: 76 Year
  Sex: Male

DRUGS (3)
  1. KEYTRUDA [Suspect]
     Active Substance: PEMBROLIZUMAB
     Indication: Bile duct cancer
     Route: 041
     Dates: start: 20240901, end: 20250401
  2. GEMCITABINE [Concomitant]
     Active Substance: GEMCITABINE
     Route: 041
  3. CISPLATIN [Concomitant]
     Active Substance: CISPLATIN
     Route: 041

REACTIONS (2)
  - Malignant neoplasm progression [Fatal]
  - Stomatitis [Recovered/Resolved]

NARRATIVE: CASE EVENT DATE: 20250601
